FAERS Safety Report 8388447-2 (Version None)
Quarter: 2012Q2

REPORT INFORMATION
  Report Type: 
  Country: None (occurrence: None)
  Receive Date: 20120525
  Receipt Date: 20120516
  Transmission Date: 20120825
  Serious: Yes (Other)
  Sender: FDA-Public Use
  Company Number: US-ASTRAZENECA-2012SE28006

PATIENT
  Age: 74 Year
  Sex: Female

DRUGS (4)
  1. VENTOLIN [Concomitant]
  2. SYMBICORT [Suspect]
     Dosage: 160/4.5 MCG DAILY
     Route: 055
  3. SYMBICORT [Suspect]
     Dosage: 160/4.5 MCG DAILY, 2 PUFFS, TWO TIMES
     Route: 055
  4. FORADIL [Concomitant]

REACTIONS (16)
  - DRUG EFFECT INCREASED [None]
  - MULTIPLE ALLERGIES [None]
  - ORAL DISCOMFORT [None]
  - GLOSSITIS [None]
  - FEELING ABNORMAL [None]
  - CONDITION AGGRAVATED [None]
  - EYE DISORDER [None]
  - PAIN [None]
  - INCREASED UPPER AIRWAY SECRETION [None]
  - COUGH [None]
  - PNEUMONIA [None]
  - DRY MOUTH [None]
  - BRONCHITIS [None]
  - DYSPHONIA [None]
  - ANGINA PECTORIS [None]
  - FATIGUE [None]
